FAERS Safety Report 15373152 (Version 3)
Quarter: 2019Q3

REPORT INFORMATION
  Report Type: Report from Study
  Country: US (occurrence: US)
  Receive Date: 20180912
  Receipt Date: 20190919
  Transmission Date: 20191004
  Serious: No
  Sender: FDA-Public Use
  Company Number: PHEH2018US037157

PATIENT
  Age: 49 Year
  Sex: Female

DRUGS (2)
  1. GILENYA [Suspect]
     Active Substance: FINGOLIMOD HYDROCHLORIDE
     Dosage: 0.5 MG, QD
     Route: 048
     Dates: start: 20180301
  2. GILENYA [Suspect]
     Active Substance: FINGOLIMOD HYDROCHLORIDE
     Indication: PRODUCT USED FOR UNKNOWN INDICATION
     Dosage: UNK UNK,
     Route: 065
     Dates: start: 20170220

REACTIONS (8)
  - Abdominal pain upper [Recovered/Resolved]
  - Migraine [Unknown]
  - Blood pressure increased [Unknown]
  - Product storage error [Unknown]
  - Central nervous system lesion [Unknown]
  - Constipation [Unknown]
  - Hypoaesthesia [Unknown]
  - Fatigue [Not Recovered/Not Resolved]

NARRATIVE: CASE EVENT DATE: 20170228
